FAERS Safety Report 9162924 (Version 2)
Quarter: 2013Q1

REPORT INFORMATION
  Report Type: Spontaneous
  Country: GB (occurrence: GB)
  Receive Date: 20130314
  Receipt Date: 20130329
  Transmission Date: 20140127
  Serious: Yes (Life-Threatening, Hospitalization, Other)
  Sender: FDA-Public Use
  Company Number: GB-009507513-1303GBR006448

PATIENT
  Age: 64 Year
  Sex: Male

DRUGS (2)
  1. ZISPIN SOLTAB [Suspect]
  2. DEPIXOL INJECTION [Concomitant]

REACTIONS (2)
  - Suicide attempt [Unknown]
  - Flashback [Unknown]
